FAERS Safety Report 26087875 (Version 1)
Quarter: 2025Q4

REPORT INFORMATION
  Report Type: Spontaneous
  Country: MY (occurrence: MY)
  Receive Date: 20251125
  Receipt Date: 20251125
  Transmission Date: 20260118
  Serious: Yes (Death, Life-Threatening, Hospitalization)
  Sender: GALPHARM INTERNATIONAL
  Company Number: MY-MLMSERVICE-20251112-PI709826-00029-1

PATIENT
  Age: 53 Year
  Sex: Male
  Weight: 70 kg

DRUGS (1)
  1. ACETAMINOPHEN [Suspect]
     Active Substance: ACETAMINOPHEN
     Indication: Toothache
     Dosage: REGULAR PCM (PARACETAMOL) DOSES, WHICH HE TOOK AS DIRECTED; THERAPEUTIC DOSE
     Route: 048

REACTIONS (4)
  - Toxicity to various agents [Fatal]
  - Acute hepatic failure [Fatal]
  - Metabolic acidosis [Fatal]
  - Hyperlactacidaemia [Fatal]
